FAERS Safety Report 18099189 (Version 1)
Quarter: 2020Q3

REPORT INFORMATION
  Report Type: Spontaneous
  Country: DE (occurrence: DE)
  Receive Date: 20200731
  Receipt Date: 20200731
  Transmission Date: 20201103
  Serious: Yes (Death, Other)
  Sender: FDA-Public Use
  Company Number: DE-PBT-000340

PATIENT
  Age: 55 Year

DRUGS (1)
  1. TACROLIMUS. [Suspect]
     Active Substance: TACROLIMUS
     Indication: PROPHYLAXIS AGAINST TRANSPLANT REJECTION
     Route: 065

REACTIONS (5)
  - Anaemia [Unknown]
  - Duodenal ulcer haemorrhage [Unknown]
  - Epstein-Barr virus associated lymphoproliferative disorder [Unknown]
  - Duodenal perforation [Unknown]
  - Multiple organ dysfunction syndrome [Fatal]
